FAERS Safety Report 11654717 (Version 2)
Quarter: 2015Q4

REPORT INFORMATION
  Report Type: Spontaneous
  Country: US (occurrence: US)
  Receive Date: 20151023
  Receipt Date: 20151028
  Transmission Date: 20160304
  Serious: No
  Sender: FDA-Public Use
  Company Number: US-PFIZER INC-2015356947

PATIENT
  Age: 60 Year
  Sex: Female
  Weight: 109 kg

DRUGS (1)
  1. ESTRING [Suspect]
     Active Substance: ESTRADIOL
     Indication: OESTROGEN DEFICIENCY
     Dosage: UNK
     Dates: start: 20151002

REACTIONS (2)
  - Product use issue [Unknown]
  - Vulvovaginal discomfort [Unknown]
